FAERS Safety Report 13189191 (Version 3)
Quarter: 2017Q2

REPORT INFORMATION
  Report Type: Spontaneous
  Country: CA (occurrence: CA)
  Receive Date: 20170206
  Receipt Date: 20170524
  Transmission Date: 20170830
  Serious: Yes (Death)
  Sender: FDA-Public Use
  Company Number: CA-SA-2017SA017686

PATIENT

DRUGS (3)
  1. JEVTANA [Suspect]
     Active Substance: CABAZITAXEL
     Indication: PROSTATE CANCER METASTATIC
     Dosage: DOSAGE FORM: SOLUTION INTRAVENOUS??JEVTANA 1.5ML SINGLEUSE VIALS. FOR I.V. INFUSION ONLY.
     Route: 042
  2. FERRLECIT [Suspect]
     Active Substance: SODIUM FERRIC GLUCONATE COMPLEX
     Indication: BLOOD IRON INCREASED
     Dosage: DOSAGE FORM: LIQUID INTRAVENOUS
     Route: 042
  3. FENTANYL. [Suspect]
     Active Substance: FENTANYL
     Dosage: DOSAGE FORM: PATCH
     Route: 065

REACTIONS (1)
  - Drug use disorder [Fatal]
